FAERS Safety Report 23156786 (Version 2)
Quarter: 2023Q4

REPORT INFORMATION
  Report Type: Spontaneous
  Country: JP (occurrence: JP)
  Receive Date: 20231108
  Receipt Date: 20231130
  Transmission Date: 20240109
  Serious: Yes (Death, Other)
  Sender: FDA-Public Use
  Company Number: JP-GILEAD-2023-0649639

PATIENT
  Age: 7 Decade
  Sex: Male
  Weight: 49.8 kg

DRUGS (2)
  1. VEKLURY [Suspect]
     Active Substance: REMDESIVIR
     Indication: COVID-19
     Dosage: 200 MG
     Route: 042
  2. VEKLURY [Suspect]
     Active Substance: REMDESIVIR
     Dosage: 100 MG, QOD
     Route: 042

REACTIONS (3)
  - Respiratory failure [Fatal]
  - Alanine aminotransferase increased [Not Recovered/Not Resolved]
  - Off label use [Recovered/Resolved]
